FAERS Safety Report 7514523-X (Version None)
Quarter: 2011Q2

REPORT INFORMATION
  Report Type: 
  Country: None (occurrence: None)
  Receive Date: 20110601
  Receipt Date: 20101207
  Transmission Date: 20111010
  Serious: No
  Sender: FDA-Public Use
  Company Number: US-BAYER-2010-004871

PATIENT
  Age: 63 Year
  Sex: Female

DRUGS (4)
  1. BENADRYL [Concomitant]
     Dosage: 50 MG, HS
     Route: 048
  2. DAPOTUM [Concomitant]
     Dosage: UNK UNK, PRN
  3. SUDAFED 12 HOUR [Concomitant]
     Dosage: UNK UNK, PRN
  4. ULTRAVIST 150 [Suspect]
     Indication: COMPUTERISED TOMOGRAM
     Dosage: 90 ML, ONCE
     Route: 042
     Dates: start: 20101207, end: 20101207

REACTIONS (2)
  - NAUSEA [None]
  - DIZZINESS [None]
